FAERS Safety Report 4928293-2 (Version None)
Quarter: 2006Q1

REPORT INFORMATION
  Report Type: 
  Country: None (occurrence: None)
  Receive Date: 20060228
  Receipt Date: 20060118
  Transmission Date: 20060701
  Serious: Yes (Hospitalization)
  Sender: FDA-Public Use
  Company Number: US-MERCK-0601USA02139

PATIENT
  Age: 61 Year
  Sex: Female
  Weight: 63 kg

DRUGS (3)
  1. VIOXX [Suspect]
     Indication: ARTHRITIS
     Route: 048
  2. ASPIRIN [Concomitant]
     Route: 065
  3. ISOSORBIDE [Concomitant]
     Route: 065

REACTIONS (11)
  - ACUTE MYOCARDIAL INFARCTION [None]
  - ANAEMIA [None]
  - CARDIAC FAILURE CONGESTIVE [None]
  - COLONIC POLYP [None]
  - CORONARY ARTERY DISEASE [None]
  - DIABETES MELLITUS [None]
  - DIVERTICULUM [None]
  - HYPOTENSION [None]
  - PULMONARY OEDEMA [None]
  - RENAL FAILURE [None]
  - VENTRICULAR DYSFUNCTION [None]
